FAERS Safety Report 9242424 (Version 2)
Quarter: 2013Q2

REPORT INFORMATION
  Report Type: Report from Study
  Country: US (occurrence: US)
  Receive Date: 20130419
  Receipt Date: 20130419
  Transmission Date: 20140414
  Serious: Yes (Hospitalization)
  Sender: FDA-Public Use
  Company Number: US-ABBOTT-13P-163-1075566-00

PATIENT
  Age: 78 Year
  Sex: Male

DRUGS (3)
  1. HUMIRA [Suspect]
     Indication: COLITIS ULCERATIVE
     Dosage: 160MG LOADING DOSE
     Dates: start: 20130118, end: 20130118
  2. SINEMET [Concomitant]
     Indication: PARKINSON^S DISEASE
  3. AZILECT [Concomitant]
     Indication: PARKINSON^S DISEASE

REACTIONS (7)
  - Weight decreased [Recovering/Resolving]
  - Colitis ulcerative [Recovering/Resolving]
  - Malnutrition [Recovering/Resolving]
  - Drug ineffective [Recovering/Resolving]
  - Diarrhoea [Recovered/Resolved]
  - Clostridium difficile infection [Recovered/Resolved]
  - Drug ineffective [Unknown]
